FAERS Safety Report 16540287 (Version 1)
Quarter: 2019Q3

REPORT INFORMATION
  Report Type: Spontaneous
  Country: US (occurrence: US)
  Receive Date: 20190708
  Receipt Date: 20190708
  Transmission Date: 20191004
  Serious: Yes (Hospitalization)
  Sender: FDA-Public Use
  Company Number: US-BAYER-2019-125032

PATIENT

DRUGS (1)
  1. ALKA-SELTZER PLUS MAXIMUM STRENGTH DAY AND NIGHT COLD AND FLU POWERMAX GELS [Suspect]
     Active Substance: ACETAMINOPHEN\DEXTROMETHORPHAN HYDROBROMIDE\DOXYLAMINE SUCCINATE\PHENYLEPHRINE HYDROCHLORIDE
     Dosage: NIGHT PILL AT 9 PM, DAY PILL 5 HRS LATER
     Route: 048

REACTIONS (6)
  - Hallucination [Unknown]
  - Tremor [Unknown]
  - Gait disturbance [Unknown]
  - Vomiting [Unknown]
  - Hyperhidrosis [Unknown]
  - Dysarthria [Unknown]
